FAERS Safety Report 19037398 (Version 1)
Quarter: 2021Q1

REPORT INFORMATION
  Report Type: Spontaneous
  Country: US (occurrence: US)
  Receive Date: 20210322
  Receipt Date: 20210322
  Transmission Date: 20210420
  Serious: No
  Sender: FDA-Public Use
  Company Number: US-ITALFARMACO SPA-2108266

PATIENT
  Age: 76 Year
  Sex: Female

DRUGS (8)
  1. ALLOPURINOL. [Concomitant]
     Active Substance: ALLOPURINOL
  2. RIFAMPIN. [Concomitant]
     Active Substance: RIFAMPIN
  3. TIGLUTIK [Suspect]
     Active Substance: RILUZOLE
     Indication: AMYOTROPHIC LATERAL SCLEROSIS
     Route: 046
     Dates: start: 20201124
  4. CEFTRIAXONE. [Concomitant]
     Active Substance: CEFTRIAXONE
  5. ASPIRIN. [Concomitant]
     Active Substance: ASPIRIN
  6. ESTRACE [Concomitant]
     Active Substance: ESTRADIOL
  7. URSODIOL. [Concomitant]
     Active Substance: URSODIOL
  8. COLCRYS [Concomitant]
     Active Substance: COLCHICINE

REACTIONS (3)
  - Fatigue [Not Recovered/Not Resolved]
  - Insomnia [Not Recovered/Not Resolved]
  - Asthenia [Not Recovered/Not Resolved]
